FAERS Safety Report 14302895 (Version 1)
Quarter: 2017Q4

REPORT INFORMATION
  Report Type: Spontaneous
  Country: US (occurrence: US)
  Receive Date: 20171219
  Receipt Date: 20171219
  Transmission Date: 20180321
  Serious: Yes (Other)
  Sender: FDA-Public Use
  Company Number: US-TORRENT-00005585

PATIENT
  Sex: Female

DRUGS (1)
  1. LOSARTAN POTASSIUM AND HYDROCHLOROTHIAZIDE [Suspect]
     Active Substance: HYDROCHLOROTHIAZIDE\LOSARTAN POTASSIUM
     Indication: HYPERTENSION
     Dosage: 100 MG/25 MG ONE TABLET BY MOUTH EVERYDAY
     Route: 048
     Dates: start: 201709

REACTIONS (3)
  - Gait disturbance [Unknown]
  - Insomnia [Unknown]
  - Back pain [Not Recovered/Not Resolved]
